FAERS Safety Report 6699294-1 (Version None)
Quarter: 2010Q2

REPORT INFORMATION
  Report Type: 
  Country: None (occurrence: None)
  Receive Date: 20100427
  Receipt Date: 20100419
  Transmission Date: 20101027
  Serious: Yes (Hospitalization)
  Sender: FDA-Public Use
  Company Number: IT-AMGEN-UK307516

PATIENT
  Sex: Female

DRUGS (3)
  1. GRANULOKINE [Suspect]
     Indication: NEUTROPENIA
     Route: 058
     Dates: start: 20080101, end: 20080401
  2. PEGASYS [Suspect]
     Route: 058
     Dates: start: 20070505, end: 20080401
  3. RIBAVIRIN [Concomitant]
     Route: 048

REACTIONS (1)
  - PSORIASIS [None]
